FAERS Safety Report 18856792 (Version 1)
Quarter: 2021Q1

REPORT INFORMATION
  Report Type: Report from Study
  Country: US (occurrence: US)
  Receive Date: 20210207
  Receipt Date: 20210207
  Transmission Date: 20210420
  Serious: No
  Sender: FDA-Public Use
  Company Number: US-ACADIA PHARMACEUTICALS INC.-ACA-2021-PIM-000137

PATIENT
  Sex: Male

DRUGS (14)
  1. CITALOPRAM [Concomitant]
     Active Substance: CITALOPRAM HYDROBROMIDE
  2. AMIODARONE [Concomitant]
     Active Substance: AMIODARONE
  3. FINASTERIDE. [Concomitant]
     Active Substance: FINASTERIDE
  4. COMBIGAN [Concomitant]
     Active Substance: BRIMONIDINE TARTRATE\TIMOLOL MALEATE
  5. LATANOPROST. [Concomitant]
     Active Substance: LATANOPROST
  6. NUPLAZID [Suspect]
     Active Substance: PIMAVANSERIN TARTRATE
     Indication: PARKINSON^S DISEASE
     Dosage: 34 MILLIGRAM, QD
     Route: 048
     Dates: start: 20190413
  7. MELATONIN [Concomitant]
     Active Substance: MELATONIN
  8. LASIX [Concomitant]
     Active Substance: FUROSEMIDE
  9. PROBIOTICS NOS [Concomitant]
     Active Substance: PROBIOTICS NOS
  10. NUPLAZID [Suspect]
     Active Substance: PIMAVANSERIN TARTRATE
     Dosage: 34 MILLIGRAM, QD
     Route: 048
  11. ASPIRIN. [Concomitant]
     Active Substance: ASPIRIN
  12. MIDODRINE [Concomitant]
     Active Substance: MIDODRINE
  13. TYLENOL [Concomitant]
     Active Substance: ACETAMINOPHEN
  14. CARBIDOPA. [Concomitant]
     Active Substance: CARBIDOPA

REACTIONS (1)
  - Product dose omission issue [Unknown]
